FAERS Safety Report 13343447 (Version 1)
Quarter: 2017Q1

REPORT INFORMATION
  Report Type: Spontaneous
  Country: JP (occurrence: US)
  Receive Date: 20170316
  Receipt Date: 20170316
  Transmission Date: 20170428
  Serious: Yes (Other)
  Sender: FDA-Public Use
  Company Number: PHHY2017US037310

PATIENT
  Age: 74 Year
  Sex: Male

DRUGS (4)
  1. IFOSFAMIDE. [Suspect]
     Active Substance: IFOSFAMIDE
     Indication: PENILE SQUAMOUS CELL CARCINOMA
     Route: 065
  2. CAPECITABINE. [Suspect]
     Active Substance: CAPECITABINE
     Indication: PENILE SQUAMOUS CELL CARCINOMA
     Route: 065
  3. PACLITAXEL. [Suspect]
     Active Substance: PACLITAXEL
     Indication: PENILE SQUAMOUS CELL CARCINOMA
     Route: 065
  4. CISPLATIN. [Suspect]
     Active Substance: CISPLATIN
     Indication: PENILE SQUAMOUS CELL CARCINOMA
     Route: 065

REACTIONS (1)
  - Myelodysplastic syndrome [Unknown]
